FAERS Safety Report 8827096 (Version 4)
Quarter: 2013Q2

REPORT INFORMATION
  Report Type: Spontaneous
  Country: US (occurrence: US)
  Receive Date: 20121008
  Receipt Date: 20130516
  Transmission Date: 20140414
  Serious: No
  Sender: FDA-Public Use
  Company Number: US-BIOGENIDEC-2012BI041783

PATIENT
  Age: 53 Year
  Sex: Male

DRUGS (3)
  1. TYSABRI [Suspect]
     Indication: MULTIPLE SCLEROSIS
     Route: 042
     Dates: start: 20120628, end: 20130208
  2. AMPYRA [Concomitant]
     Indication: MULTIPLE SCLEROSIS
  3. AMPYRA [Concomitant]
     Indication: BALANCE DISORDER

REACTIONS (15)
  - Hypersensitivity [Recovered/Resolved]
  - Dermatitis bullous [Recovered/Resolved]
  - Balance disorder [Not Recovered/Not Resolved]
  - Gait disturbance [Not Recovered/Not Resolved]
  - Dyspepsia [Not Recovered/Not Resolved]
  - Fall [Recovered/Resolved]
  - Muscle atrophy [Not Recovered/Not Resolved]
  - Pain [Not Recovered/Not Resolved]
  - Insomnia [Not Recovered/Not Resolved]
  - Spinal pain [Not Recovered/Not Resolved]
  - Multiple sclerosis relapse [Not Recovered/Not Resolved]
  - Dyspnoea [Not Recovered/Not Resolved]
  - Rash [Recovered/Resolved]
  - Pruritus [Recovered/Resolved]
  - Chest pain [Not Recovered/Not Resolved]
